FAERS Safety Report 9238298 (Version 2)
Quarter: 2013Q2

REPORT INFORMATION
  Report Type: Spontaneous
  Country: ES (occurrence: ES)
  Receive Date: 20130418
  Receipt Date: 20130529
  Transmission Date: 20140414
  Serious: Yes (Other)
  Sender: FDA-Public Use
  Company Number: ES-AMGEN-ESPSP2013026584

PATIENT
  Sex: Female
  Weight: 68 kg

DRUGS (2)
  1. NPLATE [Suspect]
     Indication: IDIOPATHIC THROMBOCYTOPENIC PURPURA
     Dosage: 750 MUG, QWK
     Dates: start: 20120831, end: 20130205
  2. CICLOSPORIN [Concomitant]
     Indication: PSORIASIS
     Dosage: 100 UNK, Q12H
     Route: 048
     Dates: start: 20110601

REACTIONS (4)
  - Blast cell count increased [Recovered/Resolved]
  - Anaemia [Recovered/Resolved]
  - Myelodysplastic syndrome [Unknown]
  - Bone marrow reticulin fibrosis [Unknown]
